FAERS Safety Report 8935188 (Version 2)
Quarter: 2012Q4

REPORT INFORMATION
  Report Type: 
  Country: NO (occurrence: NO)
  Receive Date: 20121129
  Receipt Date: 20121205
  Transmission Date: 20130627
  Serious: Yes (Other)
  Sender: FDA-Public Use
  Company Number: PHHY2012NO109323

PATIENT
  Age: 83 Year
  Sex: Female

DRUGS (3)
  1. TRAMADOL [Suspect]
     Indication: PAIN
     Dosage: 50 mg, TID
     Route: 048
     Dates: start: 201209
  2. TRAMADOL [Interacting]
     Dosage: 50 mg, BID
     Route: 048
  3. MAREVAN [Interacting]
     Indication: ATRIAL FIBRILLATION
     Dosage: 23.75 mg, QW
     Route: 048

REACTIONS (2)
  - International normalised ratio increased [Recovered/Resolved]
  - Drug interaction [Unknown]
